FAERS Safety Report 7628872-8 (Version None)
Quarter: 2011Q3

REPORT INFORMATION
  Report Type: 
  Country: None (occurrence: None)
  Receive Date: 20110722
  Receipt Date: 20110718
  Transmission Date: 20111222
  Serious: Yes (Other)
  Sender: FDA-Public Use
  Company Number: FR-BRISTOL-MYERS SQUIBB COMPANY-15907496

PATIENT
  Age: 28 Year
  Sex: Female

DRUGS (2)
  1. VINCRISTINE [Suspect]
     Indication: TERATOMA
  2. CISPLATIN [Suspect]
     Indication: TERATOMA

REACTIONS (1)
  - RESTRICTIVE CARDIOMYOPATHY [None]
